FAERS Safety Report 4657140-1 (Version None)
Quarter: 2005Q2

REPORT INFORMATION
  Report Type: 
  Country: None (occurrence: None)
  Receive Date: 20050506
  Receipt Date: 20050426
  Transmission Date: 20051028
  Serious: Yes (Death, Life-Threatening, Hospitalization)
  Sender: FDA-Public Use
  Company Number: 006

PATIENT
  Sex: Female
  Weight: 106.5953 kg

DRUGS (8)
  1. FAZACLO 100 MG ODT ALAMO PHARMACEUTICALS, LLC [Suspect]
     Indication: SCHIZOPHRENIA
     Dosage: 100 MG TID PO
     Route: 048
     Dates: start: 20050411, end: 20050417
  2. GLUCOPHAGE [Concomitant]
  3. HUMULIN [Concomitant]
  4. ZONEGRAN [Concomitant]
  5. ASPIRIN [Concomitant]
  6. POTASSIUM CHLORIDE [Concomitant]
  7. HALDOL [Concomitant]
  8. ACTONEL [Concomitant]

REACTIONS (2)
  - CARDIAC FAILURE CONGESTIVE [None]
  - GENERAL PHYSICAL HEALTH DETERIORATION [None]
